FAERS Safety Report 25038610 (Version 1)
Quarter: 2025Q1

REPORT INFORMATION
  Report Type: Spontaneous
  Country: JP (occurrence: JP)
  Receive Date: 20250304
  Receipt Date: 20250304
  Transmission Date: 20250408
  Serious: Yes (Life-Threatening, Hospitalization, Disabling, Other)
  Sender: JOHNSON AND JOHNSON
  Company Number: JP-NShinyaku-EVA20250266501001307081

PATIENT
  Age: 76 Year
  Sex: Male

DRUGS (13)
  1. XARELTO [Suspect]
     Active Substance: RIVAROXABAN
     Indication: Product used for unknown indication
     Route: 048
     Dates: end: 20250105
  2. UPTRAVI [Suspect]
     Active Substance: SELEXIPAG
     Indication: Pulmonary hypertension
     Dates: start: 20240207
  3. UPTRAVI [Suspect]
     Active Substance: SELEXIPAG
     Dates: start: 20240216
  4. UPTRAVI [Suspect]
     Active Substance: SELEXIPAG
     Dates: start: 20240217
  5. UPTRAVI [Suspect]
     Active Substance: SELEXIPAG
     Dates: start: 20240311
  6. UPTRAVI [Suspect]
     Active Substance: SELEXIPAG
     Dates: start: 20240511
  7. UPTRAVI [Suspect]
     Active Substance: SELEXIPAG
     Dates: start: 20241219
  8. UPTRAVI [Suspect]
     Active Substance: SELEXIPAG
     Dates: start: 20241228
  9. UPTRAVI [Suspect]
     Active Substance: SELEXIPAG
     Dates: start: 20241229
  10. FUROSEMIDE [Suspect]
     Active Substance: FUROSEMIDE
     Indication: Right ventricular failure
     Dates: start: 2024
  11. AMPICILLIN SODIUM\SULBACTAM SODIUM [Suspect]
     Active Substance: AMPICILLIN SODIUM\SULBACTAM SODIUM
     Indication: Pneumonia
     Dates: start: 202402
  12. Direct factor xa inhibitors [Concomitant]
     Indication: Product used for unknown indication
     Dates: start: 20250115
  13. HEPARIN [Concomitant]
     Active Substance: HEPARIN SODIUM
     Indication: Product used for unknown indication
     Dates: start: 20250106, end: 20250114

REACTIONS (8)
  - Hypotension [Recovering/Resolving]
  - Pneumonia [Recovered/Resolved]
  - Tricuspid valve incompetence [Not Recovered/Not Resolved]
  - Right ventricular failure [Recovering/Resolving]
  - Renal failure [Not Recovered/Not Resolved]
  - Diarrhoea [Recovering/Resolving]
  - Diarrhoea [Recovering/Resolving]
  - Haemoptysis [Recovered/Resolved]

NARRATIVE: CASE EVENT DATE: 20240214
